FAERS Safety Report 7068394 (Version 2)
Quarter: 2013Q4

REPORT INFORMATION
  Report Type: Spontaneous
  Country: US (occurrence: None)
  Receive Date: 20090724
  Receipt Date: 20131104
  Transmission Date: 20140711
  Serious: Yes (Other)
  Sender: FDA-Public Use
  Company Number: 2009S1005468

PATIENT
  Age: 64 Year
  Sex: Male
  Weight: 97.07 kg

DRUGS (5)
  1. SODIUM PHOSPHATE, DIBASIC\SODIUM PHOSPHATE, MONOBASIC, ANHYDROUS [Suspect]
     Indication: COLONOSCOPY
     Dosage: 90 ML, 2 IN 24 HOURS, ORAL
     Route: 048
     Dates: start: 20080210, end: 20080211
  2. ZOCOR [Suspect]
  3. LISINOPRIL [Concomitant]
  4. HYDROCHLOROTHIAZIDE [Concomitant]
  5. PROSCAR [Concomitant]

REACTIONS (3)
  - Urate nephropathy [None]
  - Acute phosphate nephropathy [None]
  - Renal failure acute [None]
